FAERS Safety Report 6699240-0 (Version None)
Quarter: 2010Q2

REPORT INFORMATION
  Report Type: 
  Country: None (occurrence: None)
  Receive Date: 20100427
  Receipt Date: 20100413
  Transmission Date: 20101027
  Serious: Yes (Death, Hospitalization, Disabling, Other)
  Sender: FDA-Public Use
  Company Number: US-ELI_LILLY_AND_COMPANY-US201004003648

PATIENT
  Sex: Female
  Weight: 33.56 kg

DRUGS (2)
  1. FORTEO [Suspect]
     Indication: OSTEOPOROSIS
     Dosage: 20 UG, DAILY (1/D)
  2. ANTIBIOTICS [Concomitant]
     Indication: PNEUMONIA

REACTIONS (8)
  - ABASIA [None]
  - CHRONIC OBSTRUCTIVE PULMONARY DISEASE [None]
  - DYSPNOEA [None]
  - EMPHYSEMA [None]
  - MUSCLE ATROPHY [None]
  - PAIN [None]
  - PNEUMONIA [None]
  - WEIGHT DECREASED [None]
